FAERS Safety Report 9911535 (Version 3)
Quarter: 2014Q2

REPORT INFORMATION
  Report Type: Report from Study
  Country: BR (occurrence: BR)
  Receive Date: 20140219
  Receipt Date: 20140422
  Transmission Date: 20141212
  Serious: Yes (Other)
  Sender: FDA-Public Use
  Company Number: PHHY2013BR149926

PATIENT
  Age: 75 Year
  Sex: Female
  Weight: 66 kg

DRUGS (5)
  1. ACLASTA [Suspect]
     Indication: OSTEOPOROSIS
     Dosage: 5 MG, UNK
     Route: 042
     Dates: start: 201310
  2. LOSARTAN POTASSIUM [Concomitant]
     Dosage: UNK UKN, UNK
     Dates: start: 2009
  3. ATENOLOL [Concomitant]
     Dosage: UNK UKN, UNK
     Dates: start: 2009
  4. INDAPAMIDE [Concomitant]
     Dosage: UNK UKN, UNK
     Dates: start: 2009
  5. AMITRIPTYLINE [Concomitant]
     Indication: DEPRESSION
     Dosage: 30 MG, UNK
     Dates: start: 2009

REACTIONS (3)
  - Cholelithiasis [Not Recovered/Not Resolved]
  - Diarrhoea [Not Recovered/Not Resolved]
  - Vomiting [Not Recovered/Not Resolved]
